FAERS Safety Report 4432873-0 (Version None)
Quarter: 2004Q3

REPORT INFORMATION
  Report Type: 
  Country: None (occurrence: None)
  Receive Date: 20040823
  Receipt Date: 20040810
  Transmission Date: 20050211
  Serious: Yes (Hospitalization)
  Sender: FDA-Public Use
  Company Number: CIP04001745

PATIENT
  Age: 66 Year
  Sex: Female
  Weight: 60 kg

DRUGS (7)
  1. MACRODANTIN [Suspect]
     Dosage: ORAL
     Route: 048
  2. VERAPAMIL HYDROCHLORIDE [Concomitant]
  3. MODURETIC     DU PONT     (AMILORIDE HYDROCHLORIDE) [Concomitant]
  4. DOTHIEPIN HYDROCHLORIDE [Concomitant]
  5. PREMARIN [Concomitant]
  6. ALLOPURINOL [Concomitant]
  7. COLGOUT (COLCHICINE) [Concomitant]

REACTIONS (7)
  - DYSPNOEA [None]
  - HYPOCHLORAEMIA [None]
  - HYPONATRAEMIA [None]
  - ORTHOSTATIC HYPOTENSION [None]
  - PARAESTHESIA [None]
  - RASH PRURITIC [None]
  - RENAL IMPAIRMENT [None]
